FAERS Safety Report 6294690-9 (Version None)
Quarter: 2009Q3

REPORT INFORMATION
  Report Type: 
  Country: None (occurrence: None)
  Receive Date: 20090803
  Receipt Date: 20090729
  Transmission Date: 20100115
  Serious: Yes (Death)
  Sender: FDA-Public Use
  Company Number: A0799419A

PATIENT
  Age: 27 Year
  Sex: Female

DRUGS (3)
  1. ADVAIR HFA [Suspect]
     Indication: DRUG USE FOR UNKNOWN INDICATION
     Route: 065
  2. BIRTH CONTROL [Suspect]
     Route: 048
  3. VITAMIN B-12 [Concomitant]
     Route: 065

REACTIONS (11)
  - ADRENAL DISORDER [None]
  - COAGULOPATHY [None]
  - DIARRHOEA [None]
  - DYSPNOEA [None]
  - FATIGUE [None]
  - NAUSEA [None]
  - PALLOR [None]
  - PULMONARY EMBOLISM [None]
  - TACHYCARDIA [None]
  - VITAMIN B12 DECREASED [None]
  - VOMITING [None]
